FAERS Safety Report 7257110-3 (Version None)
Quarter: 2011Q1

REPORT INFORMATION
  Report Type: 
  Country: None (occurrence: None)
  Receive Date: 20110129
  Receipt Date: 20100728
  Transmission Date: 20110831
  Serious: No
  Sender: FDA-Public Use
  Company Number: US-ABBOTT-10P-163-0661123-00

PATIENT
  Sex: Female
  Weight: 54.934 kg

DRUGS (1)
  1. HUMIRA [Suspect]
     Indication: CROHN'S DISEASE
     Dates: start: 20091201

REACTIONS (4)
  - INJECTION SITE PAIN [None]
  - CANDIDIASIS [None]
  - INFLUENZA [None]
  - NASOPHARYNGITIS [None]
